FAERS Safety Report 8859758 (Version 1)
Quarter: 2012Q4

REPORT INFORMATION
  Report Type: Report from Study
  Country: US (occurrence: US)
  Receive Date: 20121025
  Receipt Date: 20121025
  Transmission Date: 20130627
  Serious: No
  Sender: FDA-Public Use
  Company Number: US-ABBOTT-12P-163-0941657-00

PATIENT
  Age: 20 Year
  Sex: Female

DRUGS (4)
  1. LUPRON DEPOT 3.75 MG [Suspect]
     Indication: ENDOMETRIOSIS
     Dates: start: 201202
  2. FLONASE [Concomitant]
     Indication: HYPERSENSITIVITY
  3. MULTIVITAMINS [Concomitant]
     Indication: PRODUCT USED FOR UNKNOWN INDICATION
  4. PROGESTERONE [Concomitant]
     Indication: HORMONE REPLACEMENT THERAPY
     Dates: start: 201202

REACTIONS (2)
  - Throat tightness [Not Recovered/Not Resolved]
  - Anxiety [Not Recovered/Not Resolved]
